FAERS Safety Report 10139678 (Version 1)
Quarter: 2014Q2

REPORT INFORMATION
  Report Type: Spontaneous
  Country: BR (occurrence: BR)
  Receive Date: 20140429
  Receipt Date: 20140429
  Transmission Date: 20141212
  Serious: Yes (Hospitalization, Other)
  Sender: FDA-Public Use
  Company Number: BR-SHIRE-BR201401503

PATIENT
  Age: 16 Year
  Sex: Male

DRUGS (5)
  1. VENVANSE [Suspect]
     Indication: ATTENTION DEFICIT/HYPERACTIVITY DISORDER
     Dosage: 70 MG, 1X/DAY:QD
     Route: 048
  2. VENVANSE [Suspect]
     Dosage: UNK, UNKNOWN (TITRATION WITH PROGRESSIVE INCREASING OF DOSE)
     Route: 048
     Dates: start: 201311
  3. OLANZAPINE [Concomitant]
     Indication: PRODUCT USED FOR UNKNOWN INDICATION
     Dosage: UNK, UNKNOWN
     Route: 065
  4. OLANZAPINE [Concomitant]
     Dosage: 10 MG, ONE DOSE
     Route: 065
     Dates: start: 20140417, end: 20140417
  5. PAROXETINE [Concomitant]
     Indication: PRODUCT USED FOR UNKNOWN INDICATION
     Dosage: UNK, UNKNOWN
     Route: 065

REACTIONS (10)
  - Suicide attempt [Recovered/Resolved]
  - Drug abuse [Unknown]
  - Intentional overdose [Recovered/Resolved]
  - Hallucination [Unknown]
  - Agitation [Not Recovered/Not Resolved]
  - Hypervigilance [Unknown]
  - Educational problem [Unknown]
  - Feeling of despair [Unknown]
  - Hypertension [Not Recovered/Not Resolved]
  - Tachycardia [Not Recovered/Not Resolved]
